FAERS Safety Report 8426337-7 (Version None)
Quarter: 2012Q2

REPORT INFORMATION
  Report Type: 
  Country: None (occurrence: None)
  Receive Date: 20120611
  Receipt Date: 20120604
  Transmission Date: 20120825
  Serious: Yes (Hospitalization)
  Sender: FDA-Public Use
  Company Number: US-B.I. PHARMACEUTICALS,INC./RIDGEFIELD-2012-BP-09897BP

PATIENT
  Sex: Male
  Weight: 98.9 kg

DRUGS (13)
  1. PRADAXA [Suspect]
     Indication: ATRIAL FIBRILLATION
     Dosage: 300 MG
     Route: 048
     Dates: start: 20111001, end: 20120425
  2. PLAVIX [Concomitant]
     Indication: CORONARY ARTERY DISEASE
  3. RYTHMOL [Concomitant]
     Indication: ATRIAL FIBRILLATION
  4. PRADAXA [Suspect]
     Indication: ANTICOAGULANT THERAPY
  5. ASPIRIN [Concomitant]
     Indication: STENT PLACEMENT
  6. QUINAPRIL [Concomitant]
     Indication: HYPERTENSION
  7. TRILIPIX [Concomitant]
     Indication: HYPERLIPIDAEMIA
  8. TOPROL-XL [Concomitant]
  9. ASPIRIN [Concomitant]
     Indication: CORONARY ARTERY DISEASE
  10. PLAVIX [Concomitant]
     Indication: STENT PLACEMENT
  11. NITROL APPLI-KIT [Concomitant]
     Indication: ANAL FISSURE
  12. METOPROLOL TARTRATE [Concomitant]
     Indication: ATRIAL FIBRILLATION
  13. LIPITOR [Concomitant]
     Indication: HYPERLIPIDAEMIA

REACTIONS (1)
  - EPISTAXIS [None]
